FAERS Safety Report 4669580-5 (Version None)
Quarter: 2005Q2

REPORT INFORMATION
  Report Type: 
  Country: None (occurrence: None)
  Receive Date: 20050520
  Receipt Date: 20050504
  Transmission Date: 20051028
  Serious: Yes (Death)
  Sender: FDA-Public Use
  Company Number: 2005S1003168

PATIENT
  Age: 68 Year
  Sex: Male

DRUGS (3)
  1. CLOZAPINE [Suspect]
     Indication: SCHIZOPHRENIA
     Dosage: 200 MG; QD; PO
     Route: 048
     Dates: start: 20030411, end: 20050321
  2. SIMVASTATIN [Concomitant]
  3. FOLGARD RX 2.2 [Concomitant]

REACTIONS (1)
  - DEATH [None]
